FAERS Safety Report 8624346-6 (Version None)
Quarter: 2012Q3

REPORT INFORMATION
  Report Type: 
  Country: None (occurrence: None)
  Receive Date: 20120824
  Receipt Date: 20120824
  Transmission Date: 20120928
  Serious: Yes (Hospitalization)
  Sender: FDA-Public Use
  Company Number: None

PATIENT
  Age: 65 Year
  Sex: Male
  Weight: 83 kg

DRUGS (3)
  1. RIDAFOROLIMUS [Suspect]
     Dosage: 10MG PO DAY 1-5
     Route: 048
  2. PACLITAXEL [Suspect]
     Indication: OVARIAN CANCER
     Dates: start: 20120813, end: 20120817
  3. CARBOPLATIN [Suspect]
     Indication: OVARIAN CANCER
     Dosage: 135MG/M2/AUC 4
     Dates: start: 20120813, end: 20120813

REACTIONS (2)
  - WHITE BLOOD CELL COUNT DECREASED [None]
  - PLATELET COUNT ABNORMAL [None]
